FAERS Safety Report 4935587-3 (Version None)
Quarter: 2006Q1

REPORT INFORMATION
  Report Type: 
  Country: None (occurrence: None)
  Receive Date: 20060302
  Receipt Date: 20060214
  Transmission Date: 20060701
  Serious: Yes (Other)
  Sender: FDA-Public Use
  Company Number: US200602003118

PATIENT
  Sex: Female

DRUGS (2)
  1. FORTEO [Suspect]
  2. FORTEO [Concomitant]

REACTIONS (4)
  - CONVULSION [None]
  - HALLUCINATION [None]
  - INJECTION SITE HYPERTROPHY [None]
  - LIPOMA [None]
